FAERS Safety Report 8144538-2 (Version None)
Quarter: 2012Q1

REPORT INFORMATION
  Report Type: 
  Country: None (occurrence: None)
  Receive Date: 20120217
  Receipt Date: 20120207
  Transmission Date: 20120608
  Serious: Yes (Hospitalization, Other)
  Sender: FDA-Public Use
  Company Number: US-ALEXION-A201200063

PATIENT
  Sex: Female
  Weight: 64.5 kg

DRUGS (21)
  1. SOLIRIS [Suspect]
     Indication: PAROXYSMAL NOCTURNAL HAEMOGLOBINURIA
     Dosage: 600 MG, UNK
     Route: 042
     Dates: start: 20070910, end: 20070101
  2. LOVENOX [Concomitant]
     Dosage: UNK, BID
  3. LASIX [Concomitant]
     Dosage: UNK, PRN
  4. SENOKOT [Concomitant]
     Dosage: UNK, BID
  5. CRESTOR [Concomitant]
     Dosage: UNK, QD
  6. NPH INSULIN [Concomitant]
     Indication: DIABETES MELLITUS
     Dosage: 8 U QAM, 4 U QPM
  7. VASOTEC [Concomitant]
     Dosage: UNK, QHS
  8. POTASSIUM CHLORIDE [Concomitant]
     Dosage: UNK, PRN
  9. COREG [Concomitant]
     Indication: BLOOD PRESSURE INCREASED
     Dosage: 1.5 TAB QAM, 1 TAB QPM
  10. GLUCAGON [Concomitant]
     Indication: DIABETES MELLITUS
     Dosage: UNK
  11. FLORINEF [Concomitant]
     Dosage: UNK, QD
  12. ALPHA LIPOIC ACID [Concomitant]
     Dosage: UNK, QD
  13. ZANTAC [Concomitant]
     Dosage: 150 MG, BID
  14. REGULAR INSULIN [Concomitant]
     Indication: DIABETES MELLITUS
     Dosage: SLIDING SCALE
  15. CALCIUM [Concomitant]
     Dosage: UNK, BID
  16. FOLIC ACID [Concomitant]
     Dosage: UNK, QD
  17. PREDNISONE [Concomitant]
     Dosage: 10 MG QD, 2.5 MG QD
  18. SOLIRIS [Suspect]
     Dosage: 900 MG, Q2W
     Route: 042
     Dates: start: 20070101, end: 20091001
  19. VITAMIN D [Concomitant]
     Dosage: UNK, QMO
  20. SOLIRIS [Suspect]
     Dosage: 900 MG, Q3WK
     Route: 042
     Dates: start: 20091001
  21. OXYCODONE HCL [Concomitant]
     Indication: PAIN
     Dosage: UNK, PRN

REACTIONS (9)
  - FUNGAL INFECTION [None]
  - HAEMOLYSIS [None]
  - ARTERIAL BYPASS OPERATION [None]
  - NAIL OPERATION [None]
  - SECRETION DISCHARGE [None]
  - SEPSIS [None]
  - CELLULITIS [None]
  - ERYTHEMA [None]
  - DIABETIC NEUROPATHY [None]
